FAERS Safety Report 6010226-1 (Version None)
Quarter: 2008Q4

REPORT INFORMATION
  Report Type: 
  Country: None (occurrence: None)
  Receive Date: 20081218
  Receipt Date: 20071221
  Transmission Date: 20090506
  Serious: No
  Sender: FDA-Public Use
  Company Number: A0701072A

PATIENT
  Age: 55 Year
  Sex: Male
  Weight: 72.7 kg

DRUGS (1)
  1. FLONASE [Suspect]
     Indication: MULTIPLE ALLERGIES
     Route: 065

REACTIONS (1)
  - GYNAECOMASTIA [None]
